FAERS Safety Report 5400116-7 (Version None)
Quarter: 2007Q3

REPORT INFORMATION
  Report Type: 
  Country: None (occurrence: None)
  Receive Date: 20070726
  Receipt Date: 20070726
  Transmission Date: 20080115
  Serious: Yes (Other)
  Sender: FDA-Public Use
  Company Number: None

PATIENT
  Age: 53 Year
  Sex: Female
  Weight: 83.9154 kg

DRUGS (2)
  1. MONISTAT 3 [Suspect]
     Indication: VULVOVAGINAL BURNING SENSATION
     Dosage: 3 DAYS 1 DOSE PER DAY VAG
     Route: 067
     Dates: start: 20070102, end: 20070105
  2. MONISTAT 3 [Suspect]
     Indication: VULVOVAGINAL PRURITUS
     Dosage: 3 DAYS 1 DOSE PER DAY VAG
     Route: 067
     Dates: start: 20070102, end: 20070105

REACTIONS (2)
  - BIOPSY VULVA ABNORMAL [None]
  - VULVAL DISORDER [None]
